FAERS Safety Report 8862407 (Version 1)
Quarter: 2012Q4

REPORT INFORMATION
  Report Type: 
  Country: GB (occurrence: GB)
  Receive Date: 20121026
  Receipt Date: 20121026
  Transmission Date: 20130627
  Serious: Yes (Other)
  Sender: FDA-Public Use
  Company Number: PHFR2012GB005597

PATIENT
  Sex: Male

DRUGS (2)
  1. TEGRETOL RETARD [Suspect]
     Indication: EPILEPSY
     Dosage: 800 mg, BID
  2. VALPROIC ACID [Suspect]
     Indication: EPILEPSY
     Dosage: 1100 mg, BID

REACTIONS (1)
  - Chronic myeloid leukaemia [Unknown]
